FAERS Safety Report 6746470-5 (Version None)
Quarter: 2010Q2

REPORT INFORMATION
  Report Type: 
  Country: None (occurrence: None)
  Receive Date: 20100528
  Receipt Date: 20100225
  Transmission Date: 20101027
  Serious: No
  Sender: FDA-Public Use
  Company Number: US-ASTRAZENECA-2010SE16371

PATIENT
  Sex: Female

DRUGS (13)
  1. PRILOSEC OTC [Suspect]
     Route: 048
     Dates: start: 20100201
  2. ADVAIR DISKUS 100/50 [Concomitant]
     Dosage: UNKNOWN
  3. SPIRIVA [Concomitant]
     Dosage: UNKNOWN
  4. ALLEGRA [Concomitant]
     Dosage: UNKNOWN
  5. SINGULAIR [Concomitant]
     Dosage: UNKNOWN
  6. FLONASE [Concomitant]
     Dosage: UNKNOWN
  7. PROPIONATE [Concomitant]
     Dosage: UNKNOWN
  8. SIMVASTATIN [Concomitant]
     Dosage: UNKNOWN
  9. DIOVAN [Concomitant]
     Dosage: UNKNOWN
  10. ESTRADIOL [Concomitant]
     Dosage: UNKNOWN
  11. CALCIUM CARBONATE [Concomitant]
     Dosage: UNKNOWN
  12. VITAMIN D [Concomitant]
     Dosage: UNKNOWN
  13. NATURAL SUPPLEMENT FOR NASAL DRIP [Concomitant]
     Dosage: UNKNOWN

REACTIONS (4)
  - DYSGEUSIA [None]
  - INAPPROPRIATE SCHEDULE OF DRUG ADMINISTRATION [None]
  - INCORRECT DRUG ADMINISTRATION DURATION [None]
  - TONGUE COATED [None]
